FAERS Safety Report 7348229-7 (Version None)
Quarter: 2011Q1

REPORT INFORMATION
  Report Type: 
  Country: None (occurrence: None)
  Receive Date: 20110311
  Receipt Date: 20110301
  Transmission Date: 20110831
  Serious: Yes (Hospitalization, Other)
  Sender: FDA-Public Use
  Company Number: US-CELGENEUS-163-21880-10122240

PATIENT
  Sex: Male
  Weight: 79.3 kg

DRUGS (17)
  1. REVLIMID [Suspect]
     Indication: MYELODYSPLASTIC SYNDROME
     Dosage: 10 MILLIGRAM
     Route: 048
     Dates: start: 20090710, end: 20100128
  2. DYAZIDE [Concomitant]
     Indication: HYPERTENSION
     Dosage: 50-25MG, 1 CAPSULE
     Route: 048
  3. REVLIMID [Suspect]
     Dosage: 5 MILLIGRAM
     Route: 048
     Dates: start: 20101021, end: 20101221
  4. ATENOLOL [Concomitant]
     Indication: HYPERTENSION
     Dosage: 1 TABLET
     Route: 048
  5. CASODEX [Concomitant]
     Dosage: 50 MILLIGRAM
     Route: 065
  6. FLUTICASONE [Concomitant]
     Dosage: 2 SPRAYS INTO BOTH NOSTRILS
     Route: 045
  7. METAMUCIL-2 [Concomitant]
     Route: 048
  8. TAMSULOSIN [Concomitant]
     Dosage: 1 CAPSULE
     Route: 048
  9. ATORVASTATIN [Concomitant]
     Dosage: 1/2 TABLET
     Route: 048
  10. LEVOTHYROXINE [Concomitant]
     Dosage: 1 TABLET
     Route: 048
  11. VITAMIN B-12 [Concomitant]
     Dosage: 2 TABLET
     Route: 048
  12. ASCORBIC ACID [Concomitant]
     Dosage: 1 TABLET
     Route: 048
  13. MULTI-VITAMINS [Concomitant]
     Dosage: 1 TABLET
     Route: 048
  14. PREDNISONE [Concomitant]
     Dosage: 5 MILLIGRAM
     Route: 065
  15. MULTIVITAMIN [Concomitant]
     Dosage: 1 TABLET
     Route: 048
  16. REVLIMID [Suspect]
     Dosage: 5 MILLIGRAM
     Route: 048
     Dates: start: 20110124
  17. ACETAMINOPHEN [Concomitant]
     Dosage: 500 MILLIGRAM
     Route: 048

REACTIONS (6)
  - PULMONARY OEDEMA [None]
  - HAEMOGLOBIN DECREASED [None]
  - HAEMATURIA [None]
  - PNEUMONIA [None]
  - HAEMOGLOBIN INCREASED [None]
  - PLATELET COUNT DECREASED [None]
